FAERS Safety Report 21776692 (Version 1)
Quarter: 2022Q4

REPORT INFORMATION
  Report Type: Spontaneous
  Country: FI (occurrence: FI)
  Receive Date: 20221226
  Receipt Date: 20221226
  Transmission Date: 20230113
  Serious: Yes (Other)
  Sender: FDA-Public Use
  Company Number: FI-SUN PHARMACEUTICAL INDUSTRIES LTD-2022RR-342938

PATIENT
  Age: 83 Year
  Sex: Female

DRUGS (5)
  1. ATORVASTATIN CALCIUM [Suspect]
     Active Substance: ATORVASTATIN CALCIUM
     Indication: Blood cholesterol abnormal
     Dosage: 1 DOSAGE FORM, DAILY (20MG)
     Route: 048
     Dates: start: 202101
  2. WARFARIN SODIUM [Concomitant]
     Active Substance: WARFARIN SODIUM
     Indication: Atrial fibrillation
     Dosage: 1.5 TABLET A DAY EXCEPT 1 TABLET ON MONDAYS
     Route: 065
  3. THYROXIN 100 microg [Concomitant]
     Indication: Hypothyroidism
     Dosage: STRENGTH: 100 MICROGRAM (0.5 DOSAGE FORM,1 D), 0.5 TABLET A DAY
     Route: 065
  4. NEXIUM [Concomitant]
     Active Substance: ESOMEPRAZOLE MAGNESIUM
     Indication: Dyspepsia
     Dosage: 20 MG (1 DOSAGE FORM,AS NECESSARY), 20 MG 1 TABLET WHEN NEEDED
     Route: 065
  5. NASONEX [Concomitant]
     Active Substance: MOMETASONE FUROATE
     Indication: Nasopharyngitis
     Dosage: 1-2 SPRAYS WHEN NEEDED
     Route: 065

REACTIONS (4)
  - Polyneuropathy [Not Recovered/Not Resolved]
  - Middle insomnia [Not Recovered/Not Resolved]
  - Pain in extremity [Not Recovered/Not Resolved]
  - Burning sensation [Not Recovered/Not Resolved]
